FAERS Safety Report 10248606 (Version 1)
Quarter: 2014Q2

REPORT INFORMATION
  Report Type: Report from Study
  Country: RU (occurrence: RU)
  Receive Date: 20140620
  Receipt Date: 20140620
  Transmission Date: 20141212
  Serious: Yes (Hospitalization)
  Sender: FDA-Public Use
  Company Number: PHHY2014RU072970

PATIENT
  Age: 26 Year
  Sex: Female
  Weight: 44 kg

DRUGS (4)
  1. CERTICAN [Suspect]
     Indication: NEPHROPATHY TOXIC
     Dosage: 1.25 MG, BID
     Route: 048
     Dates: start: 20080522, end: 20090623
  2. NEORAL [Concomitant]
     Dosage: 75 MG, UNK
     Dates: start: 20070726
  3. PREDNISOLONE [Concomitant]
     Dosage: 30 MG, UNK
     Dates: start: 20070726
  4. IMMUNGLOBULIN [Concomitant]

REACTIONS (5)
  - Renal tubular necrosis [Unknown]
  - Transplant rejection [Unknown]
  - Oedema [Unknown]
  - Epstein-Barr virus infection [Recovering/Resolving]
  - Pyrexia [Unknown]
